FAERS Safety Report 4991111-0 (Version None)
Quarter: 2006Q2

REPORT INFORMATION
  Report Type: 
  Country: None (occurrence: None)
  Receive Date: 20060428
  Receipt Date: 20060414
  Transmission Date: 20061013
  Serious: Yes (Death, Hospitalization, Other)
  Sender: FDA-Public Use
  Company Number: 2005P1000478

PATIENT
  Age: 72 Year
  Sex: Female
  Weight: 85 kg

DRUGS (8)
  1. RETEPLASE (RETEPLASE) [Suspect]
     Indication: ACUTE MYOCARDIAL INFARCTION
     Dosage: 5 IU; X2; IV
     Route: 042
     Dates: start: 20051006, end: 20051006
  2. REOPRO [Suspect]
     Indication: ACUTE MYOCARDIAL INFARCTION
     Dosage: SEE IMAGE
     Route: 042
     Dates: start: 20051006, end: 20051006
  3. REOPRO [Suspect]
     Indication: ACUTE MYOCARDIAL INFARCTION
     Dosage: SEE IMAGE
     Route: 042
     Dates: start: 20051006
  4. HEPARIN [Concomitant]
  5. FUROSEMIDE [Concomitant]
  6. CLAVULIN [Concomitant]
  7. PROFUSOXYM [Concomitant]
  8. GENTAMICIN [Concomitant]

REACTIONS (10)
  - ATRIAL FIBRILLATION [None]
  - BLOOD PRESSURE SYSTOLIC INCREASED [None]
  - CARDIAC FAILURE [None]
  - DUODENAL ULCER [None]
  - EROSIVE OESOPHAGITIS [None]
  - GASTRODUODENITIS [None]
  - GASTROINTESTINAL HAEMORRHAGE [None]
  - HYPOTENSION [None]
  - PNEUMONIA [None]
  - PULMONARY OEDEMA [None]
